FAERS Safety Report 17025633 (Version 2)
Quarter: 2019Q4

REPORT INFORMATION
  Report Type: Spontaneous
  Country: MY (occurrence: MY)
  Receive Date: 20191113
  Receipt Date: 20191220
  Transmission Date: 20200122
  Serious: Yes (Other)
  Sender: FDA-Public Use
  Company Number: MY-PFIZER INC-2019483236

PATIENT
  Age: 65 Year
  Sex: Female

DRUGS (4)
  1. COVERAM [Concomitant]
     Active Substance: AMLODIPINE\PERINDOPRIL
     Indication: HYPERTENSION
     Dosage: 10/10 MG, 1X/DAY
  2. CELEBREX [Suspect]
     Active Substance: CELECOXIB
     Indication: LIGAMENT SPRAIN
     Dosage: 200 MG, 1X/DAY
     Route: 048
     Dates: start: 20190815, end: 20190819
  3. CELEBREX [Suspect]
     Active Substance: CELECOXIB
     Indication: OSTEOARTHRITIS
  4. HYDROCHLOROTHIAZIDE. [Concomitant]
     Active Substance: HYDROCHLOROTHIAZIDE
     Indication: HYPERTENSION
     Dosage: 25 MG, 1X/DAY

REACTIONS (3)
  - Hemianopia homonymous [Recovering/Resolving]
  - Retinal vein occlusion [Recovering/Resolving]
  - Macular oedema [Recovering/Resolving]

NARRATIVE: CASE EVENT DATE: 20190820
